FAERS Safety Report 5009368-9 (Version None)
Quarter: 2006Q2

REPORT INFORMATION
  Report Type: 
  Country: None (occurrence: None)
  Receive Date: 20060524
  Receipt Date: 20060511
  Transmission Date: 20061013
  Serious: Yes (Hospitalization)
  Sender: FDA-Public Use
  Company Number: HQWYE336012MAY06

PATIENT
  Sex: Female

DRUGS (3)
  1. ENBREL [Suspect]
     Indication: RHEUMATOID ARTHRITIS
     Route: 058
     Dates: start: 20051020, end: 20060506
  2. RHEUMATREX [Suspect]
     Indication: DRUG USE FOR UNKNOWN INDICATION
     Dosage: UNSPECIFIED DOSE
     Route: 048
     Dates: end: 20060506
  3. NORVASC [Concomitant]
     Dosage: UNSPECIFIED DOSE
     Route: 048

REACTIONS (2)
  - ENTEROCOLITIS [None]
  - PANCYTOPENIA [None]
